FAERS Safety Report 19265765 (Version 1)
Quarter: 2021Q2

REPORT INFORMATION
  Report Type: Other
  Country: AT (occurrence: AT)
  Receive Date: 20210518
  Receipt Date: 20210518
  Transmission Date: 20210717
  Serious: Yes (Other)
  Sender: FDA-Public Use
  Company Number: AT-CELLTRION INC.-2021AT006495

PATIENT

DRUGS (6)
  1. VINORELBINE [Suspect]
     Active Substance: VINORELBINE TARTRATE
     Indication: HER2 POSITIVE BREAST CANCER
     Dosage: 50 MG (MOST RECENT DOSE PRIOR TO EVENT ONSET: 18/SEP/2019)
     Route: 048
     Dates: start: 20190418
  2. TRASTUZUMAB (UNKNOWN) [Suspect]
     Active Substance: TRASTUZUMAB
     Indication: HER2 POSITIVE BREAST CANCER
     Dosage: 8 MG, EVERY 3 WEEKS (MOST RECENT DOSE PRIOR TO THE EVENT: 04/MAR/2019)
     Route: 042
     Dates: start: 20190208, end: 20190208
  3. GOSERELIN [Suspect]
     Active Substance: GOSERELIN
     Indication: HER2 POSITIVE BREAST CANCER
     Dosage: 3.6 MG
     Route: 058
     Dates: start: 20190208
  4. LETROZOLE. [Suspect]
     Active Substance: LETROZOLE
     Indication: HER2 POSITIVE BREAST CANCER
     Dosage: 2.5 MG, QD (MOST RECENT DOSE PRIOR TO EVENT ONSET: 12/NOV/2019)
     Route: 048
     Dates: start: 20190208
  5. PERTUZUMAB. [Suspect]
     Active Substance: PERTUZUMAB
     Indication: HER2 POSITIVE BREAST CANCER
     Dosage: 840 MG, EVERY 3 WEEKS (MOST RECENT DOSE PRIOR TO THE EVENT: 04/MAR/2019)
     Route: 042
     Dates: start: 20190208, end: 20190208
  6. ANASTROZOLE. [Suspect]
     Active Substance: ANASTROZOLE
     Indication: HER2 POSITIVE BREAST CANCER
     Dosage: 1 MG, QD
     Route: 048
     Dates: start: 20191113

REACTIONS (2)
  - Toxic skin eruption [Recovering/Resolving]
  - Underdose [Unknown]

NARRATIVE: CASE EVENT DATE: 20200909
